FAERS Safety Report 19815762 (Version 1)
Quarter: 2021Q3

REPORT INFORMATION
  Report Type: Spontaneous
  Country: DE (occurrence: DE)
  Receive Date: 20210909
  Receipt Date: 20210909
  Transmission Date: 20211014
  Serious: Yes (Hospitalization, Other)
  Sender: FDA-Public Use
  Company Number: DE-SA-2021SA295754

PATIENT
  Age: 76 Year
  Sex: Male

DRUGS (5)
  1. HYDROCHLOROTHIAZIDE;RAMIPRIL [Concomitant]
     Active Substance: HYDROCHLOROTHIAZIDE\RAMIPRIL
     Dosage: 25|5 MG, 1?0?0?0
  2. FEBUXOSTAT. [Concomitant]
     Active Substance: FEBUXOSTAT
     Dosage: 1?0?0?0
  3. METOPROLOL. [Concomitant]
     Active Substance: METOPROLOL
     Dosage: 95 MG, 1?0?0?0
  4. SIMVASTATIN. [Concomitant]
     Active Substance: SIMVASTATIN
     Dosage: 0?0?1?0
  5. CLOPIDOGREL BISULFATE. [Suspect]
     Active Substance: CLOPIDOGREL BISULFATE
     Dosage: 1?0?0?0

REACTIONS (15)
  - Dyspnoea [Recovering/Resolving]
  - Atrial fibrillation [Recovering/Resolving]
  - Pallor [Recovering/Resolving]
  - Fall [Recovering/Resolving]
  - Skin irritation [Recovering/Resolving]
  - Abdominal pain [Recovering/Resolving]
  - Arrhythmia [Recovering/Resolving]
  - Renal impairment [Recovering/Resolving]
  - Systemic infection [Recovering/Resolving]
  - Urticaria [Recovering/Resolving]
  - Electrocardiogram abnormal [Recovering/Resolving]
  - General physical health deterioration [Recovering/Resolving]
  - Oedema peripheral [Recovering/Resolving]
  - Musculoskeletal pain [Recovering/Resolving]
  - Haematochezia [Recovering/Resolving]
